FAERS Safety Report 4600241-4 (Version None)
Quarter: 2005Q1

REPORT INFORMATION
  Report Type: 
  Country: None (occurrence: None)
  Receive Date: 20050307
  Receipt Date: 20050301
  Transmission Date: 20050727
  Serious: Yes (Other)
  Sender: FDA-Public Use
  Company Number: US-GLAXOSMITHKLINE-A0547785A

PATIENT
  Age: 18 Year
  Sex: Female

DRUGS (2)
  1. MALARONE [Suspect]
     Dosage: 4TAB PER DAY
     Route: 048
  2. LAMICTAL [Concomitant]
     Indication: DRUG USE FOR UNKNOWN INDICATION

REACTIONS (4)
  - ANXIETY [None]
  - DEPRESSED LEVEL OF CONSCIOUSNESS [None]
  - PANIC ATTACK [None]
  - PSYCHOTIC DISORDER [None]
